FAERS Safety Report 24105210 (Version 1)
Quarter: 2024Q3

REPORT INFORMATION
  Report Type: Spontaneous
  Country: GB (occurrence: GB)
  Receive Date: 20240717
  Receipt Date: 20240717
  Transmission Date: 20241017
  Serious: Yes (Other)
  Sender: AMGEN
  Company Number: None

PATIENT
  Age: 51 Year
  Sex: Female
  Weight: 93 kg

DRUGS (2)
  1. ADALIMUMAB [Suspect]
     Active Substance: ADALIMUMAB\ISOPROPYL ALCOHOL
     Indication: Axial spondyloarthritis
     Dosage: 40 MILLIGRAM, Q2WK
     Route: 065
     Dates: start: 20231215, end: 20240502
  2. ESTRADIOL\NORETHINDRONE ACETATE [Concomitant]
     Active Substance: ESTRADIOL\NORETHINDRONE ACETATE
     Indication: Hormone replacement therapy
     Dosage: UNK
     Dates: start: 20210101

REACTIONS (2)
  - Palmoplantar pustulosis [Not Recovered/Not Resolved]
  - Psoriasis [Not Recovered/Not Resolved]

NARRATIVE: CASE EVENT DATE: 20240315
